FAERS Safety Report 5037937-9 (Version None)
Quarter: 2006Q2

REPORT INFORMATION
  Report Type: 
  Country: None (occurrence: None)
  Receive Date: 20060626
  Receipt Date: 20060615
  Transmission Date: 20061013
  Serious: Yes (Hospitalization)
  Sender: FDA-Public Use
  Company Number: 2005-01639

PATIENT
  Age: 73 Year
  Sex: Female
  Weight: 57 kg

DRUGS (8)
  1. VELCADE [Suspect]
     Indication: MULTIPLE MYELOMA
     Dosage: 2.00 MG,INTRAVENOUS
     Route: 042
     Dates: start: 20050429, end: 20050725
  2. PAROXETINE [Concomitant]
  3. TRAMADOL HCL [Concomitant]
  4. BACTRIM [Concomitant]
  5. EN        (DELORAZEPAM) [Concomitant]
  6. LANOXIN [Concomitant]
  7. MORPHINE [Concomitant]
  8. GLUCOCORTICOSTEROIDS [Concomitant]

REACTIONS (5)
  - DEPRESSION [None]
  - GENERAL PHYSICAL HEALTH DETERIORATION [None]
  - PSYCHOTIC DISORDER [None]
  - RESTLESSNESS [None]
  - SELF-INJURIOUS IDEATION [None]
